FAERS Safety Report 8575346 (Version 2)
Quarter: 2012Q4

REPORT INFORMATION
  Report Type: Report from Study
  Country: JP (occurrence: JP)
  Receive Date: 20120523
  Receipt Date: 20121213
  Transmission Date: 20130627
  Serious: Yes (Life-Threatening)
  Sender: FDA-Public Use
  Company Number: PHHY2012JP042977

PATIENT
  Age: 81 Year
  Sex: Male
  Weight: 80 kg

DRUGS (5)
  1. ICL670A [Suspect]
     Indication: IRON OVERLOAD
     Dosage: 125 mg, Daily
     Route: 048
     Dates: start: 20101124, end: 20101207
  2. ICL670A [Suspect]
     Dosage: 250 mg, Daily
     Route: 048
     Dates: start: 20101208, end: 20110208
  3. ICL670A [Suspect]
     Dosage: 500 mg, Daily
     Route: 048
     Dates: start: 20110209, end: 20110315
  4. ICL670A [Suspect]
     Dosage: 250 mg, Daily
     Route: 048
     Dates: start: 20110316, end: 20110412
  5. ICL670A [Suspect]
     Dosage: 500 mg, Daily
     Route: 048
     Dates: start: 20110413, end: 20110427

REACTIONS (3)
  - Myelodysplastic syndrome [Recovered/Resolved]
  - Condition aggravated [Recovered/Resolved]
  - Renal impairment [Recovered/Resolved]
